FAERS Safety Report 25533657 (Version 1)
Quarter: 2025Q3

REPORT INFORMATION
  Report Type: Spontaneous
  Country: JP (occurrence: JP)
  Receive Date: 20250709
  Receipt Date: 20250709
  Transmission Date: 20251021
  Serious: Yes (Death)
  Sender: NOVARTIS
  Company Number: JP-002147023-NVSJ2021JP019377

PATIENT
  Age: 53 Year
  Sex: Male

DRUGS (2)
  1. TAFINLAR [Suspect]
     Active Substance: DABRAFENIB MESYLATE
     Indication: Malignant melanoma
     Route: 048
  2. MEKINIST [Suspect]
     Active Substance: TRAMETINIB DIMETHYL SULFOXIDE
     Indication: Malignant melanoma
     Route: 065

REACTIONS (2)
  - Malignant melanoma [Fatal]
  - Malignant neoplasm progression [Fatal]
